FAERS Safety Report 9625442 (Version 1)
Quarter: 2013Q4

REPORT INFORMATION
  Report Type: Spontaneous
  Country: BR (occurrence: BR)
  Receive Date: 20131016
  Receipt Date: 20131016
  Transmission Date: 20140711
  Serious: Yes (Other)
  Sender: FDA-Public Use
  Company Number: BR-ACCORD-019884

PATIENT
  Age: 69 Year
  Sex: Female
  Weight: 42.1 kg

DRUGS (5)
  1. DEXAMETHASONE [Concomitant]
     Route: 042
     Dates: start: 20130923, end: 20130923
  2. NAUSETRON [Concomitant]
     Route: 042
     Dates: start: 20130923, end: 20130923
  3. PACLITAXEL [Suspect]
     Indication: CHEMOTHERAPY
     Route: 042
     Dates: start: 20130923, end: 20130923
  4. DIFENIDRIN [Concomitant]
     Route: 042
     Dates: start: 20130923, end: 20130923
  5. RANITIDINE [Concomitant]
     Route: 042
     Dates: start: 20130923, end: 20130923

REACTIONS (3)
  - Bradycardia [Recovered/Resolved]
  - Suffocation feeling [Recovered/Resolved]
  - Back pain [Recovered/Resolved]
